FAERS Safety Report 25121749 (Version 1)
Quarter: 2025Q1

REPORT INFORMATION
  Report Type: Spontaneous
  Country: US (occurrence: US)
  Receive Date: 20250326
  Receipt Date: 20250326
  Transmission Date: 20250408
  Serious: Yes (Other)
  Sender: Kenvue
  Company Number: US-KENVUE-20250306079

PATIENT
  Age: 42 Year
  Sex: Female

DRUGS (6)
  1. TYLENOL [Suspect]
     Active Substance: ACETAMINOPHEN
     Indication: Viral infection
     Route: 065
  2. JYNARQUE [Suspect]
     Active Substance: TOLVAPTAN
     Indication: Congenital cystic kidney disease
     Route: 065
     Dates: start: 20211027
  3. JYNARQUE [Suspect]
     Active Substance: TOLVAPTAN
     Route: 065
     Dates: start: 20211027
  4. JYNARQUE [Suspect]
     Active Substance: TOLVAPTAN
     Route: 065
     Dates: start: 20211027
  5. JYNARQUE [Suspect]
     Active Substance: TOLVAPTAN
     Route: 065
     Dates: start: 20231026, end: 202503
  6. JYNARQUE [Suspect]
     Active Substance: TOLVAPTAN
     Route: 065
     Dates: start: 20250304, end: 202503

REACTIONS (3)
  - Product use issue [Unknown]
  - Transaminases increased [Not Recovered/Not Resolved]
  - Illness [Recovered/Resolved]

NARRATIVE: CASE EVENT DATE: 20250304
